FAERS Safety Report 15009633 (Version 1)
Quarter: 2018Q2

REPORT INFORMATION
  Report Type: Report from Study
  Country: US (occurrence: US)
  Receive Date: 20180614
  Receipt Date: 20180614
  Transmission Date: 20180711
  Serious: Yes (Other)
  Sender: FDA-Public Use
  Company Number: US-REGENERON PHARMACEUTICALS, INC.-2018-18751

PATIENT

DRUGS (9)
  1. HYDROXYZINE HYDROCHLORIDE. [Concomitant]
     Active Substance: HYDROXYZINE HYDROCHLORIDE
     Indication: PRODUCT USED FOR UNKNOWN INDICATION
     Dosage: 25 MG, UNK
     Route: 048
  2. LUCENTIS [Suspect]
     Active Substance: RANIBIZUMAB
     Indication: RETINAL VEIN OCCLUSION
     Dosage: 0.5 MG, UNK
  3. HYDROXYZINE PAMOATE. [Concomitant]
     Active Substance: HYDROXYZINE PAMOATE
     Indication: PRODUCT USED FOR UNKNOWN INDICATION
     Dosage: 42.6 MG, UNK
     Route: 048
  4. SIMVASTATIN. [Concomitant]
     Active Substance: SIMVASTATIN
     Indication: PRODUCT USED FOR UNKNOWN INDICATION
     Dosage: 40 MG, UNK
     Route: 048
  5. METFORMIN HCL [Concomitant]
     Active Substance: METFORMIN HYDROCHLORIDE
     Indication: PRODUCT USED FOR UNKNOWN INDICATION
     Dosage: 500 MG, UNK
     Route: 048
  6. EYLEA [Suspect]
     Active Substance: AFLIBERCEPT
     Indication: RETINAL VEIN OCCLUSION
     Dosage: UNK
     Route: 031
     Dates: start: 20161128
  7. OMEPRAZOLE. [Concomitant]
     Active Substance: OMEPRAZOLE
     Indication: PRODUCT USED FOR UNKNOWN INDICATION
     Dosage: 20 MG, UNK
  8. EYLEA [Suspect]
     Active Substance: AFLIBERCEPT
     Indication: MACULAR OEDEMA
     Dosage: DOSE #6, LAST PRIOR EVENT
     Route: 031
     Dates: start: 20171002, end: 20171002
  9. LUCENTIS [Suspect]
     Active Substance: RANIBIZUMAB
     Indication: MACULAR OEDEMA
     Dosage: 0.5 MG, UNK
     Dates: start: 20180226, end: 20180226

REACTIONS (6)
  - Uveitis [Unknown]
  - Type 2 diabetes mellitus [Unknown]
  - Eye inflammation [Recovered/Resolved]
  - Wrong technique in product usage process [Unknown]
  - Drug ineffective [Unknown]
  - Optic atrophy [Unknown]

NARRATIVE: CASE EVENT DATE: 20171002
